FAERS Safety Report 8530082-7 (Version None)
Quarter: 2012Q3

REPORT INFORMATION
  Report Type: 
  Country: None (occurrence: None)
  Receive Date: 20120710
  Receipt Date: 20120702
  Transmission Date: 20120928
  Serious: Yes (Disabling)
  Sender: FDA-Public Use
  Company Number: GER/UKI/12/0024877

PATIENT
  Age: 79 Year
  Sex: Female

DRUGS (4)
  1. BENDROFLUMETHIAZIDE [Concomitant]
  2. NEBIVOLOL [Concomitant]
  3. FEXOFENADINE [Suspect]
     Indication: RHINITIS ALLERGIC
     Dosage: 1 DOSAGE FORMS, 1 IN 1 D, ORAL
     Route: 048
     Dates: start: 20120524
  4. RALOXIFENE HCL [Concomitant]

REACTIONS (1)
  - ARRHYTHMIA [None]
